FAERS Safety Report 13219442 (Version 2)
Quarter: 2019Q1

REPORT INFORMATION
  Report Type: Spontaneous
  Country: US (occurrence: US)
  Receive Date: 20170210
  Receipt Date: 20190116
  Transmission Date: 20190417
  Serious: No
  Sender: FDA-Public Use
  Company Number: US-ASTRAZENECA-2007BM04194

PATIENT
  Age: 51 Year
  Sex: Male
  Weight: 131.5 kg

DRUGS (43)
  1. BYETTA [Suspect]
     Active Substance: EXENATIDE
     Indication: TYPE 2 DIABETES MELLITUS
     Route: 058
     Dates: end: 201807
  2. OMEPRAZOLE. [Suspect]
     Active Substance: OMEPRAZOLE
     Indication: GASTROOESOPHAGEAL REFLUX DISEASE
     Route: 048
     Dates: start: 2018
  3. LANTUS [Concomitant]
     Active Substance: INSULIN GLARGINE
     Indication: TYPE 2 DIABETES MELLITUS
     Dosage: 30 IU, QD
     Dates: start: 200612
  4. LEVEMIR [Concomitant]
     Active Substance: INSULIN DETEMIR
     Indication: TYPE 2 DIABETES MELLITUS
     Route: 058
     Dates: start: 2015
  5. METFORMIN [Concomitant]
     Active Substance: METFORMIN HYDROCHLORIDE
     Indication: TYPE 2 DIABETES MELLITUS
     Route: 048
     Dates: start: 2001
  6. ASPIRIN. [Concomitant]
     Active Substance: ASPIRIN
     Indication: ANTICOAGULANT THERAPY
     Route: 048
     Dates: start: 1995
  7. VERAPAMIL [Concomitant]
     Active Substance: VERAPAMIL HYDROCHLORIDE
     Indication: HEART RATE IRREGULAR
     Route: 048
     Dates: start: 201506
  8. FUROSEMIDE. [Concomitant]
     Active Substance: FUROSEMIDE
  9. MAGNESIUM [Concomitant]
     Active Substance: MAGNESIUM
     Indication: MUSCLE SPASMS
  10. BYETTA [Suspect]
     Active Substance: EXENATIDE
     Indication: TYPE 2 DIABETES MELLITUS
     Route: 058
     Dates: start: 2001
  11. BYETTA [Suspect]
     Active Substance: EXENATIDE
     Indication: TYPE 2 DIABETES MELLITUS
     Route: 058
     Dates: start: 200610, end: 200611
  12. LISINOPRIL. [Suspect]
     Active Substance: LISINOPRIL
     Route: 048
  13. ORAL DIABETIC MEDICATION [Concomitant]
     Indication: TYPE 2 DIABETES MELLITUS
     Dosage: UNK
  14. DULOXETINE. [Concomitant]
     Active Substance: DULOXETINE
     Indication: DEPRESSION
     Route: 048
     Dates: start: 1995
  15. GABAPENTIN. [Concomitant]
     Active Substance: GABAPENTIN
     Indication: RESTLESS LEGS SYNDROME
     Route: 048
     Dates: start: 2011
  16. MULTIVITAMIN [Concomitant]
     Active Substance: VITAMINS
     Indication: GENERAL PHYSICAL CONDITION
     Dosage: DAILY
     Route: 048
     Dates: start: 2002
  17. FUROSEMIDE. [Concomitant]
     Active Substance: FUROSEMIDE
  18. BYETTA [Suspect]
     Active Substance: EXENATIDE
     Indication: TYPE 2 DIABETES MELLITUS
     Route: 058
     Dates: start: 200611
  19. NOVOLOG [Concomitant]
     Active Substance: INSULIN ASPART
     Indication: TYPE 2 DIABETES MELLITUS
     Dosage: 60.0IU UNKNOWN
     Route: 058
     Dates: start: 2015
  20. LAMICTAL [Concomitant]
     Active Substance: LAMOTRIGINE
     Route: 048
     Dates: start: 201612
  21. GABAPENTIN. [Concomitant]
     Active Substance: GABAPENTIN
     Indication: NEUROPATHY PERIPHERAL
     Route: 048
     Dates: start: 2011
  22. FENOFIBRATE. [Concomitant]
     Active Substance: FENOFIBRATE
     Indication: BLOOD TRIGLYCERIDES ABNORMAL
     Route: 048
     Dates: start: 20161212
  23. ATENOLOL. [Suspect]
     Active Substance: ATENOLOL
     Indication: HYPERTENSION
     Route: 048
  24. BYDUREON [Suspect]
     Active Substance: EXENATIDE
     Indication: GLYCOSYLATED HAEMOGLOBIN INCREASED
     Route: 058
     Dates: start: 201811
  25. BYDUREON [Suspect]
     Active Substance: EXENATIDE
     Indication: BLOOD PRESSURE ABNORMAL
     Route: 058
     Dates: start: 201811
  26. ALLOPURINOL. [Concomitant]
     Active Substance: ALLOPURINOL
     Indication: GOUT
     Route: 048
     Dates: start: 2013
  27. TORSEMIDE. [Concomitant]
     Active Substance: TORSEMIDE
     Indication: SWELLING
     Route: 048
     Dates: start: 2007
  28. PERCOCET [Concomitant]
     Active Substance: ACETAMINOPHEN\OXYCODONE HYDROCHLORIDE
     Indication: BACK PAIN
     Dosage: AS REQUIRED
     Route: 048
     Dates: start: 2014
  29. INVOKANA [Concomitant]
     Active Substance: CANAGLIFLOZIN
     Indication: TYPE 2 DIABETES MELLITUS
     Route: 048
     Dates: start: 2012
  30. ASPRIN [Concomitant]
     Active Substance: ASPIRIN
  31. DULOXETINE. [Concomitant]
     Active Substance: DULOXETINE
     Indication: BACK PAIN
     Route: 048
     Dates: start: 1995
  32. DULOXETINE. [Concomitant]
     Active Substance: DULOXETINE
     Indication: PAIN
     Route: 048
     Dates: start: 1995
  33. TORSEMIDE. [Concomitant]
     Active Substance: TORSEMIDE
     Indication: FLUID RETENTION
     Route: 048
     Dates: start: 2007
  34. PERCOCET [Concomitant]
     Active Substance: ACETAMINOPHEN\OXYCODONE HYDROCHLORIDE
     Indication: PAIN IN EXTREMITY
     Dosage: AS REQUIRED
     Route: 048
     Dates: start: 2014
  35. LISINOPRIL. [Suspect]
     Active Substance: LISINOPRIL
     Route: 048
  36. HUMALOG [Concomitant]
     Active Substance: INSULIN LISPRO
     Indication: DIABETES MELLITUS
     Dosage: 50 IU, PRN50.0IU AS REQUIRED
     Dates: end: 200610
  37. MAGNESIUM [Concomitant]
     Active Substance: MAGNESIUM
     Indication: MUSCLE SPASMS
     Route: 048
     Dates: start: 2012
  38. LOVASTATIN. [Concomitant]
     Active Substance: LOVASTATIN
  39. BYDUREON [Suspect]
     Active Substance: EXENATIDE
     Indication: DECREASED APPETITE
     Route: 058
     Dates: start: 201811
  40. FARXIGA [Suspect]
     Active Substance: DAPAGLIFLOZIN PROPANEDIOL
     Route: 048
     Dates: start: 2016, end: 2018
  41. LANTUS [Concomitant]
     Active Substance: INSULIN GLARGINE
     Indication: TYPE 2 DIABETES MELLITUS
     Dosage: 125 IU, QD, MORNING
  42. TORSEMIDE. [Concomitant]
     Active Substance: TORSEMIDE
     Indication: HYPERTENSION
     Route: 048
     Dates: start: 2007
  43. GABAPENTIN. [Concomitant]
     Active Substance: GABAPENTIN

REACTIONS (18)
  - Sciatic nerve injury [Unknown]
  - Foot fracture [Recovered/Resolved]
  - Intervertebral disc degeneration [Unknown]
  - Abdominal discomfort [Unknown]
  - Abdominal pain upper [Recovering/Resolving]
  - Nephrolithiasis [Recovered/Resolved]
  - Blood glucose decreased [Recovered/Resolved]
  - Hyperhidrosis [Recovered/Resolved]
  - Decreased appetite [Unknown]
  - Intervertebral disc protrusion [Unknown]
  - Weight decreased [Unknown]
  - Nausea [Unknown]
  - Inability to afford medication [Unknown]
  - Gastrooesophageal reflux disease [Unknown]
  - Tremor [Recovered/Resolved]
  - Dysgeusia [Recovered/Resolved]
  - Product quality issue [Unknown]
  - Drug effect incomplete [Unknown]

NARRATIVE: CASE EVENT DATE: 2005
